FAERS Safety Report 7904672-6 (Version None)
Quarter: 2011Q4

REPORT INFORMATION
  Report Type: 
  Country: None (occurrence: None)
  Receive Date: 20111109
  Receipt Date: 20111103
  Transmission Date: 20120403
  Serious: Yes (Other)
  Sender: FDA-Public Use
  Company Number: FR-GLAXOSMITHKLINE-B0708176A

PATIENT
  Age: 54 Year
  Sex: Female
  Weight: 76 kg

DRUGS (12)
  1. SINGULAIR [Suspect]
     Indication: PRODUCT USED FOR UNKNOWN INDICATION
     Route: 048
  2. LASIX [Concomitant]
     Dates: start: 20060101
  3. POTASSIUM CHLORIDE [Concomitant]
     Dates: start: 20060101
  4. CARVEDILOL [Concomitant]
     Route: 048
  5. ATACAND [Concomitant]
     Dates: start: 20060101
  6. NEXIUM [Concomitant]
     Dates: start: 20060101
  7. FLUTICASONE PROPIONATE/SALMETEROL [Suspect]
     Indication: PRODUCT USED FOR UNKNOWN INDICATION
     Route: 055
  8. PRAVASTATIN [Suspect]
     Indication: PRODUCT USED FOR UNKNOWN INDICATION
     Route: 048
  9. MEDIATOR [Suspect]
     Indication: TYPE 2 DIABETES MELLITUS
     Dosage: 300MG PER DAY
     Route: 048
     Dates: start: 20040301, end: 20060901
  10. LANSOPRAZOLE [Suspect]
     Indication: PRODUCT USED FOR UNKNOWN INDICATION
     Route: 048
     Dates: end: 20060101
  11. LEVOTHYROXINE SODIUM [Suspect]
     Indication: PRODUCT USED FOR UNKNOWN INDICATION
     Route: 048
  12. ALDACTAZIDE [Concomitant]
     Route: 048
     Dates: end: 20060101

REACTIONS (2)
  - MITRAL VALVE INCOMPETENCE [None]
  - AORTIC VALVE INCOMPETENCE [None]
